FAERS Safety Report 21828768 (Version 1)
Quarter: 2023Q1

REPORT INFORMATION
  Report Type: Spontaneous
  Country: US (occurrence: None)
  Receive Date: 20230105
  Receipt Date: 20230105
  Transmission Date: 20230418
  Serious: No
  Sender: FDA-Public Use
  Company Number: None

PATIENT
  Sex: Female
  Weight: 88.9 kg

DRUGS (6)
  1. IBRANCE [Suspect]
     Active Substance: PALBOCICLIB
     Dosage: OTHER FREQUENCY : 21 DAYS ON,7 D OFF;?
     Route: 048
  2. ATORVASTATIN [Concomitant]
     Active Substance: ATORVASTATIN
  3. CARVEDILOL [Concomitant]
  4. NITROGLYCERIN [Concomitant]
     Active Substance: NITROGLYCERIN
  5. PAROXETINE [Concomitant]
     Active Substance: PAROXETINE
  6. TRANDOLAPRIL [Concomitant]

REACTIONS (2)
  - Neutrophil count decreased [None]
  - Therapy interrupted [None]
